FAERS Safety Report 5233921-0 (Version None)
Quarter: 2007Q1

REPORT INFORMATION
  Report Type: 
  Country: None (occurrence: None)
  Receive Date: 20070208
  Receipt Date: 20070202
  Transmission Date: 20070707
  Serious: Yes (Other)
  Sender: FDA-Public Use
  Company Number: US-BRISTOL-MYERS SQUIBB COMPANY-13662879

PATIENT
  Age: 41 Year
  Sex: Male
  Weight: 45 kg

DRUGS (6)
  1. ATAZANAVIR [Suspect]
     Indication: HIV INFECTION
  2. TENOFOVIR [Suspect]
     Indication: HIV INFECTION
  3. RITONAVIR [Suspect]
     Indication: HIV INFECTION
  4. FOSAMPRENAVIR CALCIUM [Suspect]
     Indication: HIV INFECTION
  5. ABACAVIR [Suspect]
     Indication: HIV INFECTION
  6. LAMIVUDINE [Suspect]
     Indication: HIV INFECTION

REACTIONS (5)
  - DIABETES INSIPIDUS [None]
  - HYPOKALAEMIA [None]
  - HYPOPHOSPHATAEMIA [None]
  - RENAL TUBULAR DISORDER [None]
  - RHABDOMYOLYSIS [None]
